FAERS Safety Report 22634282 (Version 2)
Quarter: 2023Q2

REPORT INFORMATION
  Report Type: Report from Study
  Country: US (occurrence: US)
  Receive Date: 20230623
  Receipt Date: 20230626
  Transmission Date: 20230721
  Serious: No
  Sender: FDA-Public Use
  Company Number: US-002147023-NVSC2023US139567

PATIENT
  Sex: Male

DRUGS (3)
  1. COSENTYX [Suspect]
     Active Substance: SECUKINUMAB
     Indication: Psoriasis
     Dosage: UNK
     Route: 065
  2. TRIAMCINOLONE [Suspect]
     Active Substance: TRIAMCINOLONE
     Indication: Psoriasis
     Dosage: UNK (TRIAMCINOLONE ACETONIDE)
     Route: 065
  3. HYDROXYZINE [Suspect]
     Active Substance: HYDROXYZINE HYDROCHLORIDE
     Indication: Psoriasis
     Dosage: UNK (HYDROXYZINE HCI)
     Route: 065

REACTIONS (6)
  - Photodermatosis [Unknown]
  - Androgenetic alopecia [Unknown]
  - Rash [Unknown]
  - Psoriasis [Unknown]
  - Product use in unapproved indication [Unknown]
  - Drug ineffective [Unknown]
